FAERS Safety Report 11863355 (Version 1)
Quarter: 2015Q4

REPORT INFORMATION
  Report Type: Report from Study
  Country: US (occurrence: US)
  Receive Date: 20151223
  Receipt Date: 20151223
  Transmission Date: 20160305
  Serious: Yes (Hospitalization)
  Sender: FDA-Public Use
  Company Number: US-ABBVIE-15K-163-1521641-00

PATIENT
  Sex: Male

DRUGS (1)
  1. HUMIRA [Suspect]
     Active Substance: ADALIMUMAB
     Indication: PSORIASIS
     Route: 058
     Dates: end: 201501

REACTIONS (6)
  - Lower limb fracture [Recovered/Resolved]
  - Road traffic accident [Not Recovered/Not Resolved]
  - Splenic rupture [Recovered/Resolved]
  - Head injury [Not Recovered/Not Resolved]
  - Dementia [Recovered/Resolved with Sequelae]
  - Abasia [Not Recovered/Not Resolved]

NARRATIVE: CASE EVENT DATE: 2015
